FAERS Safety Report 8146318-0 (Version None)
Quarter: 2012Q1

REPORT INFORMATION
  Report Type: 
  Country: None (occurrence: None)
  Receive Date: 20120217
  Receipt Date: 20110819
  Transmission Date: 20120608
  Serious: No
  Sender: FDA-Public Use
  Company Number: US-ABBOTT-11P-163-0848047-00

PATIENT
  Sex: Male
  Weight: 99.88 kg

DRUGS (2)
  1. DIOVAN HCT [Concomitant]
     Indication: PRODUCT USED FOR UNKNOWN INDICATION
  2. SIMCOR [Suspect]
     Indication: HIGH DENSITY LIPOPROTEIN DECREASED
     Dosage: 500MG/20MG AT BEDTIME
     Dates: start: 20090101

REACTIONS (2)
  - SKIN WARM [None]
  - ERYTHEMA [None]
